FAERS Safety Report 16690186 (Version 2)
Quarter: 2019Q3

REPORT INFORMATION
  Report Type: Spontaneous
  Country: AU (occurrence: AU)
  Receive Date: 20190809
  Receipt Date: 20190919
  Transmission Date: 20191004
  Serious: Yes (Other)
  Sender: FDA-Public Use
  Company Number: AU-AMGEN-AUSSP2019123927

PATIENT
  Age: 55 Year
  Sex: Female

DRUGS (6)
  1. PROLIA [Suspect]
     Active Substance: DENOSUMAB
     Indication: OSTEOPOROSIS
     Dosage: 60 MILLIGRAM, Q12MO
     Route: 058
  2. NUROFEN [IBUPROFEN] [Concomitant]
     Active Substance: IBUPROFEN
     Dosage: UNK
  3. PARACETAMOL [Concomitant]
     Active Substance: ACETAMINOPHEN
     Indication: ARTHRALGIA
     Dosage: UNK
  4. VITAMINS [ASCORBIC ACID;ERGOCALCIFEROL;NICOTINAMIDE;RETINOL;RIBOFLAVIN [Concomitant]
     Dosage: UNK
  5. PROLIA [Suspect]
     Active Substance: DENOSUMAB
     Indication: OSTEOMYELITIS
  6. ELAXINE [MIRTAZAPINE] [Concomitant]
     Indication: ANTIDEPRESSANT THERAPY
     Dosage: 25 MILLIGRAM

REACTIONS (5)
  - Peripheral coldness [Unknown]
  - Off label use [Unknown]
  - Device issue [Unknown]
  - Arthralgia [Unknown]
  - Hernia [Unknown]

NARRATIVE: CASE EVENT DATE: 201907
